FAERS Safety Report 9769118 (Version 1)
Quarter: 2013Q4

REPORT INFORMATION
  Report Type: Spontaneous
  Country: US (occurrence: None)
  Receive Date: 20131217
  Receipt Date: 20131217
  Transmission Date: 20140711
  Serious: Yes (Life-Threatening, Disabling)
  Sender: FDA-Public Use
  Company Number: None

PATIENT
  Age: 4 Month
  Sex: Male
  Weight: 3.5 kg

DRUGS (1)
  1. ZANTAC [Suspect]
     Indication: GASTROOESOPHAGEAL REFLUX DISEASE
     Dosage: 2 ML TWICE DAILY TAKEN BY  MOUTH
     Route: 048
     Dates: start: 20121205, end: 20131014

REACTIONS (4)
  - Diarrhoea [None]
  - Atrioventricular block second degree [None]
  - Atrioventricular block complete [None]
  - Middle insomnia [None]
